FAERS Safety Report 4461556-6 (Version None)
Quarter: 2004Q3

REPORT INFORMATION
  Report Type: 
  Country: None (occurrence: None)
  Receive Date: 20040910
  Receipt Date: 20040130
  Transmission Date: 20050211
  Serious: Yes (Hospitalization)
  Sender: FDA-Public Use
  Company Number: TNZUS200400001 (0)

PATIENT
  Sex: Male

DRUGS (2)
  1. INNOHEP [Suspect]
     Dosage: 175 IU/KG, SUBCTANEOUS
     Route: 058
     Dates: start: 20031113, end: 20031114
  2. LOVENOX [Concomitant]

REACTIONS (1)
  - SUBCLAVIAN VEIN THROMBOSIS [None]
